FAERS Safety Report 7460148-4 (Version None)
Quarter: 2011Q2

REPORT INFORMATION
  Report Type: 
  Country: None (occurrence: None)
  Receive Date: 20110505
  Receipt Date: 20110427
  Transmission Date: 20111010
  Serious: Yes (Other)
  Sender: FDA-Public Use
  Company Number: US-ELI_LILLY_AND_COMPANY-US200903004660

PATIENT
  Sex: Male

DRUGS (4)
  1. HUMULIN R [Suspect]
     Indication: DIABETES MELLITUS
  2. HUMALOG [Suspect]
     Indication: DIABETES MELLITUS
     Dosage: UNK, PRN
  3. LANTUS [Concomitant]
     Indication: DIABETES MELLITUS
     Dosage: UNK
  4. HUMULIN N [Suspect]
     Indication: DIABETES MELLITUS

REACTIONS (3)
  - CATARACT [None]
  - DIABETIC RETINOPATHY [None]
  - BLINDNESS UNILATERAL [None]
